FAERS Safety Report 9232780 (Version 2)
Quarter: 2013Q4

REPORT INFORMATION
  Report Type: Spontaneous
  Country: IL (occurrence: IL)
  Receive Date: 20130416
  Receipt Date: 20131220
  Transmission Date: 20140711
  Serious: Yes (Death, Hospitalization, Other)
  Sender: FDA-Public Use
  Company Number: IL-JNJFOC-20130406136

PATIENT
  Sex: Male
  Weight: 105 kg

DRUGS (8)
  1. STELARA [Suspect]
     Indication: PSORIASIS
     Dosage: APPROXIMATE TOTAL NUMBERS OF INJECTIONS PATIENT RECEIVED 6
     Route: 058
     Dates: start: 20121106, end: 20130507
  2. NEOTIGAZONE [Suspect]
     Indication: PRODUCT USED FOR UNKNOWN INDICATION
     Route: 065
  3. NEOTIGAZONE [Suspect]
     Indication: PRODUCT USED FOR UNKNOWN INDICATION
     Route: 065
  4. OMEPRADEX [Concomitant]
     Dosage: CHRONIC FOR YEARS
     Route: 065
  5. SEROQUEL [Concomitant]
     Dosage: CHRONIC FOR YEARS
     Route: 065
  6. CYMBALTA [Concomitant]
     Dosage: CHRONIC FOR YEARS
     Route: 065
  7. ENALAPRIL [Concomitant]
     Dosage: CHRONIC FOR YEARS
     Route: 065
  8. SIMVASTATIN [Concomitant]
     Dosage: CHRONIC FOR YEARS
     Route: 065

REACTIONS (5)
  - Death [Fatal]
  - Chronic obstructive pulmonary disease [Unknown]
  - Psoriatic arthropathy [Unknown]
  - Dermatitis [Recovering/Resolving]
  - Fungal infection [Recovering/Resolving]
